FAERS Safety Report 12899805 (Version 2)
Quarter: 2017Q1

REPORT INFORMATION
  Report Type: Spontaneous
  Country: US (occurrence: US)
  Receive Date: 20161101
  Receipt Date: 20170105
  Transmission Date: 20170428
  Serious: No
  Sender: FDA-Public Use
  Company Number: US-PFIZER INC-2016505595

PATIENT
  Age: 11 Year
  Sex: Female
  Weight: 50 kg

DRUGS (3)
  1. VISTARIL [Concomitant]
     Active Substance: HYDROXYZINE PAMOATE
     Indication: ANXIETY
  2. QUILLIVANT XR [Suspect]
     Active Substance: METHYLPHENIDATE HYDROCHLORIDE
     Indication: ATTENTION DEFICIT/HYPERACTIVITY DISORDER
     Dosage: UNK
     Dates: start: 2014, end: 2016
  3. VISTARIL [Concomitant]
     Active Substance: HYDROXYZINE PAMOATE
     Indication: SLEEP DISORDER
     Dosage: 25 MG, UNK, 25 MG TABLET BY MOUTH AT BEDTIME OR AS NEEDED FOR ANXIETY ATTACKS
     Route: 048
     Dates: start: 2014, end: 2016

REACTIONS (6)
  - Malaise [Unknown]
  - Nausea [Unknown]
  - Drug dose omission [Unknown]
  - Product quality issue [Unknown]
  - Decreased appetite [Unknown]
  - Motion sickness [Unknown]

NARRATIVE: CASE EVENT DATE: 2014
